FAERS Safety Report 18198669 (Version 1)
Quarter: 2020Q3

REPORT INFORMATION
  Report Type: Spontaneous
  Country: US (occurrence: US)
  Receive Date: 20200826
  Receipt Date: 20200826
  Transmission Date: 20201103
  Serious: Yes (Hospitalization, Other)
  Sender: FDA-Public Use
  Company Number: US-JNJFOC-20200824697

PATIENT
  Age: 82 Year
  Sex: Female
  Weight: 40.86 kg

DRUGS (7)
  1. DEUTETRABENAZINE [Concomitant]
     Active Substance: DEUTETRABENAZINE
     Indication: TARDIVE DYSKINESIA
  2. CANAGLIFLOZIN W/METFORMIN [Concomitant]
  3. INVEGA SUSTENNA [Suspect]
     Active Substance: PALIPERIDONE PALMITATE
  4. DONEPEZIL. [Concomitant]
     Active Substance: DONEPEZIL
     Indication: DEMENTIA
  5. AMANTADINE. [Concomitant]
     Active Substance: AMANTADINE HYDROCHLORIDE
     Indication: DEMENTIA
  6. INVEGA SUSTENNA [Suspect]
     Active Substance: PALIPERIDONE PALMITATE
  7. INVEGA SUSTENNA [Suspect]
     Active Substance: PALIPERIDONE PALMITATE
     Indication: SCHIZOAFFECTIVE DISORDER
     Route: 030

REACTIONS (7)
  - Sedation [Unknown]
  - Aggression [Unknown]
  - Gait disturbance [Unknown]
  - Tremor [Unknown]
  - Speech disorder [Unknown]
  - Dementia [Unknown]
  - Fatigue [Unknown]

NARRATIVE: CASE EVENT DATE: 202007
